FAERS Safety Report 8771914 (Version 1)
Quarter: 2012Q4

REPORT INFORMATION
  Report Type: 
  Country: BE (occurrence: BE)
  Receive Date: 20120907
  Receipt Date: 20120907
  Transmission Date: 20130627
  Serious: Yes (Other)
  Sender: FDA-Public Use
  Company Number: BE-TEVA-356927ISR

PATIENT
  Sex: Female

DRUGS (1)
  1. TAMOXIFEN [Suspect]
     Route: 065

REACTIONS (3)
  - Stillbirth [Not Recovered/Not Resolved]
  - Foetal disorder [Not Recovered/Not Resolved]
  - Maternal exposure before pregnancy [Unknown]
